FAERS Safety Report 23401183 (Version 3)
Quarter: 2024Q1

REPORT INFORMATION
  Report Type: Spontaneous
  Country: US (occurrence: US)
  Receive Date: 20240115
  Receipt Date: 20240225
  Transmission Date: 20240409
  Serious: No
  Sender: FDA-Public Use
  Company Number: US-LUPIN PHARMACEUTICALS INC.-2024-00128

PATIENT

DRUGS (1)
  1. ALBUTEROL SULFATE [Suspect]
     Active Substance: ALBUTEROL SULFATE
     Indication: Chronic obstructive pulmonary disease
     Dosage: UNK, QD 2 PUFFS A DAY
     Dates: start: 20231222

REACTIONS (4)
  - Dyspnoea [Unknown]
  - Drug dose omission by device [Unknown]
  - Device deposit issue [Unknown]
  - Device delivery system issue [Unknown]
